FAERS Safety Report 25214879 (Version 6)
Quarter: 2025Q2

REPORT INFORMATION
  Report Type: Spontaneous
  Country: US (occurrence: US)
  Receive Date: 20250418
  Receipt Date: 20250529
  Transmission Date: 20250717
  Serious: No
  Sender: PFIZER
  Company Number: US-PFIZER INC-202500076463

PATIENT
  Age: 10 Year
  Sex: Female
  Weight: 24.04 kg

DRUGS (3)
  1. GENOTROPIN [Suspect]
     Active Substance: SOMATROPIN
     Indication: Short stature
  2. GENOTROPIN [Suspect]
     Active Substance: SOMATROPIN
     Dates: start: 202407
  3. LEVOTHYROXINE [Concomitant]
     Active Substance: LEVOTHYROXINE
     Indication: Blood thyroid stimulating hormone decreased
     Dosage: 25 TABLET ONCE A DAY BY MOUTH
     Route: 048

REACTIONS (7)
  - Overdose [Unknown]
  - Drug dose omission by device [Unknown]
  - Incorrect dose administered by device [Unknown]
  - Device use error [Unknown]
  - Device defective [Unknown]
  - Device delivery system issue [Unknown]
  - Device occlusion [Unknown]
